FAERS Safety Report 23303582 (Version 3)
Quarter: 2024Q1

REPORT INFORMATION
  Report Type: Spontaneous
  Country: RS (occurrence: RS)
  Receive Date: 20231215
  Receipt Date: 20240206
  Transmission Date: 20240410
  Serious: Yes (Other)
  Sender: FDA-Public Use
  Company Number: RS-BAUSCH-BL-2023-018139

PATIENT
  Age: 56 Year
  Sex: Female
  Weight: 100.5 kg

DRUGS (7)
  1. METFORMIN [Suspect]
     Active Substance: METFORMIN HYDROCHLORIDE
     Indication: Product used for unknown indication
     Route: 065
  2. ROSUVASTATIN [Suspect]
     Active Substance: ROSUVASTATIN
     Indication: Hyperlipidaemia
     Route: 065
  3. INDAPAMIDE\PERINDOPRIL ERBUMINE [Suspect]
     Active Substance: INDAPAMIDE\PERINDOPRIL ERBUMINE
     Indication: Hypertension
     Dosage: 4+1.25 MG, FOR THE LAST FIVE YEARS
     Route: 065
  4. BUPROPION HYDROCHLORIDE\NALTREXONE HYDROCHLORIDE [Suspect]
     Active Substance: BUPROPION HYDROCHLORIDE\NALTREXONE HYDROCHLORIDE
     Indication: Product used for unknown indication
     Dosage: 80/9 MG, 1+0+0 FOR 7 DAYS
     Route: 065
  5. BUPROPION HYDROCHLORIDE\NALTREXONE HYDROCHLORIDE [Suspect]
     Active Substance: BUPROPION HYDROCHLORIDE\NALTREXONE HYDROCHLORIDE
     Dosage: 80/9 MG, 1+0+1 FOR 7 DAYS
     Route: 065
  6. BUPROPION HYDROCHLORIDE\NALTREXONE HYDROCHLORIDE [Suspect]
     Active Substance: BUPROPION HYDROCHLORIDE\NALTREXONE HYDROCHLORIDE
     Dosage: 80/9 MG, 2+0+1 FOR 7 DAYS
     Route: 065
  7. BUPROPION HYDROCHLORIDE\NALTREXONE HYDROCHLORIDE [Suspect]
     Active Substance: BUPROPION HYDROCHLORIDE\NALTREXONE HYDROCHLORIDE
     Dosage: 80/9 MG, 2+0+2
     Route: 065

REACTIONS (13)
  - Hepatic steatosis [Recovered/Resolved]
  - Autoimmune thyroiditis [Recovered/Resolved]
  - Disease risk factor [Recovered/Resolved]
  - Obesity [Recovered/Resolved]
  - Increased appetite [Recovered/Resolved]
  - Food craving [Recovered/Resolved]
  - Hyperphagia [Recovered/Resolved]
  - Hyperglycaemia [Recovered/Resolved]
  - Back pain [Recovered/Resolved]
  - Arthralgia [Recovered/Resolved]
  - Fatigue [Recovered/Resolved]
  - Dry mouth [Recovered/Resolved]
  - Nausea [Recovered/Resolved]
